FAERS Safety Report 11336187 (Version 2)
Quarter: 2015Q3

REPORT INFORMATION
  Report Type: Spontaneous
  Country: US (occurrence: US)
  Receive Date: 20150804
  Receipt Date: 20150922
  Transmission Date: 20151125
  Serious: No
  Sender: FDA-Public Use
  Company Number: ALCN2015US004787

PATIENT
  Age: 72 Year
  Sex: Female

DRUGS (1)
  1. TOBRADEX [Suspect]
     Active Substance: DEXAMETHASONE\TOBRAMYCIN
     Indication: HORDEOLUM
     Dosage: 1 DF, BID
     Route: 047
     Dates: start: 20150711, end: 20150726

REACTIONS (5)
  - Eye swelling [Recovering/Resolving]
  - Blood pressure increased [Recovered/Resolved]
  - Ocular hyperaemia [Recovering/Resolving]
  - Eye pain [Recovered/Resolved]
  - Photophobia [Recovered/Resolved]

NARRATIVE: CASE EVENT DATE: 20150726
